FAERS Safety Report 8798555 (Version 1)
Quarter: 2012Q4

REPORT INFORMATION
  Report Type: Spontaneous
  Country: US (occurrence: None)
  Receive Date: 20120917
  Receipt Date: 20120917
  Transmission Date: 20130627
  Serious: Yes (Other)
  Sender: FDA-Public Use
  Company Number: None

PATIENT
  Age: 8 Year
  Sex: Male
  Weight: 30.84 kg

DRUGS (1)
  1. SINGULAIR [Suspect]
     Indication: ALLERGY
     Dosage: 1 5 MG Tablet 1 a day
     Dates: start: 20120212, end: 20120712

REACTIONS (5)
  - Mood swings [None]
  - Aggression [None]
  - Screaming [None]
  - Anxiety [None]
  - Autophobia [None]
